FAERS Safety Report 6758226-8 (Version None)
Quarter: 2010Q2

REPORT INFORMATION
  Report Type: 
  Country: None (occurrence: None)
  Receive Date: 20100607
  Receipt Date: 20100602
  Transmission Date: 20101027
  Serious: Yes (Life-Threatening, Other)
  Sender: FDA-Public Use
  Company Number: US-ALLERGAN-0914486US

PATIENT
  Age: 4 Year
  Sex: Male
  Weight: 18.141 kg

DRUGS (4)
  1. BOTOX [Suspect]
     Indication: MUSCLE CONTRACTURE
     Dosage: 200 UNITS, SINGLE
     Route: 030
     Dates: start: 20000224, end: 20000224
  2. BOTOX [Suspect]
     Dosage: 200 UNITS, SINGLE
     Route: 030
     Dates: start: 19991208, end: 19991208
  3. BOTOX [Suspect]
     Dosage: UNK UNITS, SINGLE
     Route: 030
  4. EMLA [Concomitant]
     Route: 061

REACTIONS (8)
  - BLINDNESS CORTICAL [None]
  - BRAIN INJURY [None]
  - DRUG INEFFECTIVE [None]
  - HEART RATE DECREASED [None]
  - HYPOTONIA [None]
  - NEUROLOGICAL DECOMPENSATION [None]
  - RESPIRATORY RATE DECREASED [None]
  - SOMNOLENCE [None]
